FAERS Safety Report 4654455-8 (Version None)
Quarter: 2005Q2

REPORT INFORMATION
  Report Type: 
  Country: None (occurrence: None)
  Receive Date: 20050506
  Receipt Date: 20050401
  Transmission Date: 20051028
  Serious: Yes (Hospitalization)
  Sender: FDA-Public Use
  Company Number: PHHO2005US05462

PATIENT
  Age: 42 Year
  Sex: Female
  Weight: 69 kg

DRUGS (8)
  1. TEGASEROD [Suspect]
     Indication: DYSPEPSIA
     Dosage: UNK, BID
     Route: 048
     Dates: start: 20041220, end: 20050324
  2. TEGASEROD [Suspect]
     Dates: end: 20050328
  3. AUGMENTIN '125' [Concomitant]
  4. CONCERTA [Concomitant]
  5. SINGULAIR [Concomitant]
  6. ALBUTEROL [Concomitant]
  7. ANTIBIOTICS [Concomitant]
  8. CITRUCEL [Concomitant]

REACTIONS (5)
  - ABDOMINAL PAIN [None]
  - APPENDICITIS [None]
  - GASTROINTESTINAL HAEMORRHAGE [None]
  - NAUSEA [None]
  - VOMITING [None]
